APPROVED DRUG PRODUCT: VIROPTIC
Active Ingredient: TRIFLURIDINE
Strength: 1%
Dosage Form/Route: SOLUTION/DROPS;OPHTHALMIC
Application: N018299 | Product #001 | TE Code: AT
Applicant: MONARCH PHARMACEUTICALS LLC
Approved: Approved Prior to Jan 1, 1982 | RLD: Yes | RS: Yes | Type: RX